FAERS Safety Report 25606208 (Version 1)
Quarter: 2025Q3

REPORT INFORMATION
  Report Type: Spontaneous
  Country: US (occurrence: US)
  Receive Date: 20250725
  Receipt Date: 20250725
  Transmission Date: 20251020
  Serious: No
  Sender: PFIZER
  Company Number: US-PFIZER INC-202500129292

PATIENT
  Age: 53 Year
  Sex: Male

DRUGS (1)
  1. CIBINQO [Suspect]
     Active Substance: ABROCITINIB
     Indication: Erythrodermic atopic dermatitis
     Dosage: 100 MG, DAILY

REACTIONS (1)
  - Drug ineffective [Unknown]
